FAERS Safety Report 6266992-3 (Version None)
Quarter: 2009Q3

REPORT INFORMATION
  Report Type: 
  Country: None (occurrence: None)
  Receive Date: 20090714
  Receipt Date: 20090702
  Transmission Date: 20100115
  Serious: Yes (Hospitalization, Other)
  Sender: FDA-Public Use
  Company Number: PHHO2009GB02058

PATIENT
  Sex: Male
  Weight: 59.9 kg

DRUGS (20)
  1. EXELON [Suspect]
     Indication: DEMENTIA
     Dosage: 4.6 MG/5CM2
     Route: 061
     Dates: start: 20090127
  2. ASPIRIN [Concomitant]
  3. RANITIDINE [Concomitant]
  4. SIMVASTATIN [Concomitant]
  5. LEVOTHYROXINE SODIUM [Concomitant]
  6. STALEVO 100 [Concomitant]
  7. FLUDROCORTISONE [Concomitant]
  8. SINEMET [Concomitant]
  9. PARACETAMOL [Concomitant]
  10. CALCICHEW D3 [Concomitant]
  11. SENNA [Concomitant]
  12. LACTULOSE [Concomitant]
  13. ALENDRONIC ACID [Concomitant]
  14. ENOXAPARIN SODIUM [Concomitant]
  15. CO-CARELDOPA [Concomitant]
  16. AUGMENTIN [Concomitant]
  17. FORTISIP [Concomitant]
  18. CALOGEN [Concomitant]
  19. MORPHINE [Concomitant]
  20. CYCLIZINE [Concomitant]

REACTIONS (8)
  - ABDOMINAL DISTENSION [None]
  - ABDOMINAL PAIN [None]
  - CONCOMITANT DISEASE PROGRESSION [None]
  - CONSTIPATION [None]
  - INTESTINAL DILATATION [None]
  - INTESTINAL OBSTRUCTION [None]
  - LOWER RESPIRATORY TRACT INFECTION [None]
  - ORAL CANDIDIASIS [None]
